FAERS Safety Report 5750614-1 (Version None)
Quarter: 2008Q2

REPORT INFORMATION
  Report Type: 
  Country: None (occurrence: None)
  Receive Date: 20080523
  Receipt Date: 20080523
  Transmission Date: 20081010
  Serious: Yes (Other)
  Sender: FDA-Public Use
  Company Number: None

PATIENT
  Age: 27 Year
  Sex: Female
  Weight: 148.3262 kg

DRUGS (1)
  1. BENZONATATE [Suspect]
     Indication: COUGH
     Dosage: 1 CAPSULE  2 TO 3 XS DAILY PO
     Route: 048
     Dates: start: 20080521, end: 20080521

REACTIONS (2)
  - DRUG HYPERSENSITIVITY [None]
  - DYSPNOEA [None]
